FAERS Safety Report 5121543-1 (Version None)
Quarter: 2006Q4

REPORT INFORMATION
  Report Type: 
  Country: None (occurrence: None)
  Receive Date: 20061006
  Receipt Date: 20060926
  Transmission Date: 20070319
  Serious: Yes (Other)
  Sender: FDA-Public Use
  Company Number: NL-SOLVAY-00306003175

PATIENT
  Age: 43 Year
  Sex: Male

DRUGS (2)
  1. ANDROGEL [Suspect]
     Indication: BLOOD TESTOSTERONE DECREASED
     Dosage: DAILY DOSE: 50 MILLIGRAM(S)
     Route: 048
     Dates: start: 20060325, end: 20060530
  2. SUSTANON [Suspect]
     Indication: TRANSGENDER HORMONAL THERAPY
     Dosage: DAILY DOSE: 250 MILLIGRAM(S), 21 DAYS CYCLE.
     Route: 065
     Dates: start: 20021127, end: 20060530

REACTIONS (5)
  - DISTURBANCE IN ATTENTION [None]
  - FEAR [None]
  - INSOMNIA [None]
  - MENTAL STATUS CHANGES [None]
  - NERVOUSNESS [None]
